FAERS Safety Report 10082261 (Version 2)
Quarter: 2014Q2

REPORT INFORMATION
  Report Type: Spontaneous
  Country: US (occurrence: US)
  Receive Date: 20140416
  Receipt Date: 20140416
  Transmission Date: 20141212
  Serious: Yes (Other)
  Sender: FDA-Public Use
  Company Number: US-BAYER-2014-042354

PATIENT
  Age: 93 Year
  Sex: Female

DRUGS (2)
  1. ALEVE CAPLET [Suspect]
  2. LOSARTAN [Concomitant]
     Indication: HYPERTENSION

REACTIONS (2)
  - Renal function test abnormal [None]
  - Therapeutic response changed [None]
